FAERS Safety Report 12505198 (Version 1)
Quarter: 2016Q2

REPORT INFORMATION
  Report Type: Spontaneous
  Country: GB (occurrence: GB)
  Receive Date: 20160628
  Receipt Date: 20160628
  Transmission Date: 20160815
  Serious: Yes (Other)
  Sender: FDA-Public Use
  Company Number: GB-GLAXOSMITHKLINE-GB2016089011

PATIENT
  Age: 43 Year
  Sex: Male
  Weight: 57 kg

DRUGS (2)
  1. PRAMIPEXOLE. [Concomitant]
     Active Substance: PRAMIPEXOLE
     Dosage: 1 DF, QD, 2-3 HOURS BEFORE BEDTIME.
     Route: 065
     Dates: start: 20160610
  2. ROPINIROLE. [Suspect]
     Active Substance: ROPINIROLE
     Indication: PRODUCT USED FOR UNKNOWN INDICATION
     Dosage: UNK
     Route: 065
     Dates: start: 20160223

REACTIONS (2)
  - Alopecia [Unknown]
  - Hypotrichosis [Unknown]

NARRATIVE: CASE EVENT DATE: 20160610
